FAERS Safety Report 24038898 (Version 2)
Quarter: 2025Q1

REPORT INFORMATION
  Report Type: Report from Study
  Country: FR (occurrence: FR)
  Receive Date: 20240702
  Receipt Date: 20250213
  Transmission Date: 20250408
  Serious: Yes (Death, Other)
  Sender: AUROBINDO
  Company Number: FR-TAKEDA-2024TUS059722

PATIENT

DRUGS (7)
  1. LENALIDOMIDE [Suspect]
     Active Substance: LENALIDOMIDE
     Indication: Plasma cell myeloma
     Route: 048
  2. DEXAMETHASONE [Suspect]
     Active Substance: DEXAMETHASONE
     Indication: Plasma cell myeloma
     Dosage: 20 MILLIGRAM, EVERY WEEK
     Route: 048
  3. ISATUXIMAB [Suspect]
     Active Substance: ISATUXIMAB
     Indication: Plasma cell myeloma
     Route: 042
  4. ISATUXIMAB [Suspect]
     Active Substance: ISATUXIMAB
     Dosage: 10 MILLIGRAM, EVERY WEEK
     Route: 042
  5. ISATUXIMAB [Suspect]
     Active Substance: ISATUXIMAB
     Route: 042
  6. VELCADE [Suspect]
     Active Substance: BORTEZOMIB
     Indication: Plasma cell myeloma
     Route: 058
  7. VELCADE [Suspect]
     Active Substance: BORTEZOMIB
     Route: 058

REACTIONS (1)
  - Plasma cell myeloma [Fatal]
